FAERS Safety Report 4432108-9 (Version None)
Quarter: 2004Q3

REPORT INFORMATION
  Report Type: 
  Country: None (occurrence: None)
  Receive Date: 20040819
  Receipt Date: 20040810
  Transmission Date: 20050211
  Serious: Yes (Other)
  Sender: FDA-Public Use
  Company Number: 2004-08-0642

PATIENT
  Age: 65 Year
  Sex: Male

DRUGS (6)
  1. INTRON A [Suspect]
     Indication: CARCINOID TUMOUR
     Dosage: SEE IMAGE
  2. INTRON A [Suspect]
     Indication: METASTASIS
     Dosage: SEE IMAGE
  3. INTRON A [Suspect]
     Indication: CARCINOID TUMOUR
     Dosage: SEE IMAGE
  4. INTRON A [Suspect]
     Indication: METASTASIS
     Dosage: SEE IMAGE
  5. INTRON A [Suspect]
     Indication: CARCINOID TUMOUR
     Dosage: SEE IMAGE
  6. INTRON A [Suspect]
     Indication: METASTASIS
     Dosage: SEE IMAGE

REACTIONS (8)
  - ASTHENIA [None]
  - CONDITION AGGRAVATED [None]
  - DIALYSIS [None]
  - DRUG TOXICITY [None]
  - NAUSEA [None]
  - RENAL FAILURE [None]
  - TUBULOINTERSTITIAL NEPHRITIS [None]
  - VOMITING [None]
